FAERS Safety Report 10048141 (Version 2)
Quarter: 2014Q2

REPORT INFORMATION
  Report Type: Spontaneous
  Country: IT (occurrence: IT)
  Receive Date: 20140331
  Receipt Date: 20140603
  Transmission Date: 20141212
  Serious: Yes (Hospitalization)
  Sender: FDA-Public Use
  Company Number: IT-PFIZER INC-2014089588

PATIENT
  Age: 47 Year
  Sex: Male

DRUGS (5)
  1. QUARK [Suspect]
     Indication: HYPERTENSION
     Dosage: 10 MG, DAILY
     Route: 048
     Dates: start: 20111101, end: 20140303
  2. SERTRALINE HYDROCHLORIDE [Concomitant]
  3. CARDIOASPIRIN [Concomitant]
  4. PLAVIX [Concomitant]
  5. XANAX [Concomitant]

REACTIONS (5)
  - Chest pain [Recovering/Resolving]
  - Dyspnoea [Recovering/Resolving]
  - Depressed level of consciousness [Recovering/Resolving]
  - Pain in extremity [Recovering/Resolving]
  - Loss of consciousness [Recovering/Resolving]
